FAERS Safety Report 8920188 (Version 2)
Quarter: 2013Q2

REPORT INFORMATION
  Report Type: Report from Study
  Country: FR (occurrence: FR)
  Receive Date: 20121122
  Receipt Date: 20130514
  Transmission Date: 20140414
  Serious: No
  Sender: FDA-Public Use
  Company Number: FR-ROCHE-1137975

PATIENT
  Age: 54 Year
  Sex: Female
  Weight: 79 kg

DRUGS (9)
  1. TOCILIZUMAB [Suspect]
     Indication: RHEUMATOID ARTHRITIS
     Route: 042
     Dates: start: 20120202
  2. TOCILIZUMAB [Suspect]
     Dosage: DOSE REDUCED TO HALF THE INITIAL DOSE
     Route: 042
  3. TOCILIZUMAB [Suspect]
     Route: 065
     Dates: start: 20120328
  4. TOCILIZUMAB [Suspect]
     Route: 065
     Dates: start: 20120503
  5. TOCILIZUMAB [Suspect]
     Route: 065
     Dates: start: 20120601
  6. TOCILIZUMAB [Suspect]
     Route: 065
     Dates: start: 20120705
  7. METHOTREXATE [Concomitant]
     Indication: PROPHYLAXIS
     Route: 042
     Dates: start: 201106, end: 20120731
  8. METHOTREXATE [Concomitant]
     Route: 048
  9. PREDNISONE [Concomitant]
     Indication: PROPHYLAXIS
     Route: 048
     Dates: start: 201106

REACTIONS (1)
  - Liver function test abnormal [Recovered/Resolved]
